FAERS Safety Report 22134755 (Version 1)
Quarter: 2023Q1

REPORT INFORMATION
  Report Type: Spontaneous
  Country: US (occurrence: US)
  Receive Date: 20230324
  Receipt Date: 20230324
  Transmission Date: 20230418
  Serious: No
  Sender: FDA-Public Use
  Company Number: US-ABBVIE-4698396

PATIENT
  Age: 54 Year
  Sex: Female

DRUGS (1)
  1. CYCLOSPORINE [Suspect]
     Active Substance: CYCLOSPORINE
     Indication: Angiolymphoid hyperplasia with eosinophilia
     Route: 048

REACTIONS (1)
  - Gastrointestinal disorder [Unknown]
